FAERS Safety Report 5813802-1 (Version None)
Quarter: 2008Q3

REPORT INFORMATION
  Report Type: 
  Country: None (occurrence: None)
  Receive Date: 20080717
  Receipt Date: 20080710
  Transmission Date: 20090109
  Serious: Yes (Hospitalization)
  Sender: FDA-Public Use
  Company Number: US-AVENTIS-200816538GDDC

PATIENT
  Age: 55 Year
  Sex: Male
  Weight: 74.83 kg

DRUGS (3)
  1. INSULIN GLARGINE [Suspect]
     Indication: TYPE 1 DIABETES MELLITUS
     Route: 058
     Dates: start: 20051209, end: 20071119
  2. INVESTIGATIONAL DRUG [Suspect]
     Dates: start: 20051202, end: 20071119
  3. INHALED HUMAN INSULIN [Concomitant]

REACTIONS (1)
  - CONVULSION [None]
